FAERS Safety Report 5162674-X (Version None)
Quarter: 2006Q4

REPORT INFORMATION
  Report Type: 
  Country: None (occurrence: None)
  Receive Date: 20061201
  Receipt Date: 20061117
  Transmission Date: 20070319
  Serious: Yes (Hospitalization)
  Sender: FDA-Public Use
  Company Number: PHBS2006JP18133

PATIENT
  Age: 75 Year
  Sex: Male

DRUGS (14)
  1. ZADITEN [Suspect]
     Indication: PRURITUS
     Dosage: 2 DF/DAY
     Route: 048
     Dates: end: 20061107
  2. ASPIRIN [Concomitant]
  3. NORVASC [Concomitant]
  4. NITOROL [Concomitant]
  5. EURODIN [Concomitant]
  6. NOVORAPID [Concomitant]
  7. CALTAN [Concomitant]
  8. MICARDIS [Concomitant]
  9. ASPENON [Concomitant]
  10. LENDORMIN [Concomitant]
  11. CALONAL [Concomitant]
  12. SIGMART [Concomitant]
  13. LASIX [Concomitant]
  14. GASTER D [Concomitant]

REACTIONS (3)
  - POLLAKIURIA [None]
  - PYELONEPHRITIS ACUTE [None]
  - URINARY TRACT INFECTION [None]
